FAERS Safety Report 9221529 (Version 2)
Quarter: 2013Q4

REPORT INFORMATION
  Report Type: Spontaneous
  Country: GB (occurrence: None)
  Receive Date: 20130408
  Receipt Date: 20131025
  Transmission Date: 20140711
  Serious: Yes (Life-Threatening, Hospitalization)
  Sender: FDA-Public Use
  Company Number: AUR-APL-2013-02815

PATIENT
  Age: 57 Year
  Sex: Female

DRUGS (10)
  1. FLUOXETINE (FLUOXETINE) [Suspect]
     Indication: DEPRESSION
     Route: 048
  2. ITRACONAZOLE [Suspect]
     Indication: ASPERGILLUS INFECTION
     Route: 048
     Dates: start: 20130125, end: 20130311
  3. RUPAFIN [Suspect]
     Indication: ASTHMA
     Route: 048
     Dates: end: 20130314
  4. AIROMIR (SALBUTAMOL) [Concomitant]
  5. CARBOCISTEINE (CARBOCISTEINE) [Concomitant]
  6. MONTELUKAST [Concomitant]
  7. OMEPRAZOLE (OMEPRAZOLE) [Concomitant]
  8. SODIUM CHLORIDE SOLUTION (SODIUM CHLORIDE) [Concomitant]
  9. SYMBICORT [Suspect]
  10. UNIPHYLLIN CONTINUS (THEOPHYLLINE) [Concomitant]

REACTIONS (6)
  - Convulsion [None]
  - Urinary tract infection [None]
  - Syncope [None]
  - Electrocardiogram QT prolonged [None]
  - Ventricular fibrillation [None]
  - Cardiac arrest [None]
